FAERS Safety Report 10486047 (Version 1)
Quarter: 2014Q3

REPORT INFORMATION
  Report Type: Spontaneous
  Country: US (occurrence: None)
  Receive Date: 20140930
  Receipt Date: 20140930
  Transmission Date: 20150326
  Serious: Yes (Hospitalization, Disabling)
  Sender: FDA-Public Use
  Company Number: None

PATIENT
  Age: 55 Year
  Sex: Male
  Weight: 92.99 kg

DRUGS (7)
  1. AMLODIPINE [Concomitant]
     Active Substance: AMLODIPINE BESYLATE
  2. MAGNESIUM 400 [Concomitant]
  3. VITAMIN D [Concomitant]
     Active Substance: CHOLECALCIFEROL
  4. DIOVAN 160 [Concomitant]
  5. METFORMIN [Concomitant]
     Active Substance: METFORMIN HYDROCHLORIDE
  6. SIMVASTATIN. [Suspect]
     Active Substance: SIMVASTATIN
     Indication: BLOOD CHOLESTEROL INCREASED
     Dosage: 10 OR 20 MG  1 PILL ONCE PER DAY BY MOUTH
     Route: 048
     Dates: start: 2004, end: 20040224
  7. COQ10 [Concomitant]
     Active Substance: UBIDECARENONE

REACTIONS (3)
  - Gait disturbance [None]
  - Myalgia [None]
  - Myositis [None]

NARRATIVE: CASE EVENT DATE: 20120205
